APPROVED DRUG PRODUCT: CHILDREN'S IBUPROFEN
Active Ingredient: IBUPROFEN
Strength: 100MG/5ML
Dosage Form/Route: SUSPENSION;ORAL
Application: A074937 | Product #001
Applicant: L PERRIGO CO
Approved: Dec 22, 1998 | RLD: No | RS: No | Type: OTC